FAERS Safety Report 9384670 (Version 1)
Quarter: 2013Q3

REPORT INFORMATION
  Report Type: Spontaneous
  Country: BR (occurrence: BR)
  Receive Date: 20130705
  Receipt Date: 20130705
  Transmission Date: 20140515
  Serious: Yes (Death)
  Sender: FDA-Public Use
  Company Number: BR-PFIZER INC-2013196642

PATIENT
  Age: 96 Year
  Sex: Male

DRUGS (2)
  1. LIPITOR [Suspect]
     Dosage: UNK
     Route: 048
     Dates: start: 201110
  2. ALDACTONE [Suspect]
     Dosage: UNK
     Route: 048
     Dates: start: 201110

REACTIONS (2)
  - Coronary artery disease [Fatal]
  - Cardiomyopathy [Fatal]
